FAERS Safety Report 17589872 (Version 1)
Quarter: 2020Q1

REPORT INFORMATION
  Report Type: Spontaneous
  Country: US (occurrence: US)
  Receive Date: 20200325
  Receipt Date: 20200325
  Transmission Date: 20200409
  Serious: Yes (Hospitalization)
  Sender: FDA-Public Use
  Company Number: None

PATIENT
  Age: 64 Year
  Sex: Female

DRUGS (8)
  1. BUPROPN HCL [Concomitant]
     Active Substance: BUPROPION HYDROCHLORIDE
  2. DICLOFENAC [Concomitant]
     Active Substance: DICLOFENAC
  3. PREGABALIN. [Concomitant]
     Active Substance: PREGABALIN
  4. HUMIRA [Suspect]
     Active Substance: ADALIMUMAB
     Indication: PSORIATIC ARTHROPATHY
     Route: 058
     Dates: start: 20190321
  5. HYDROCO/APAP [Concomitant]
     Active Substance: ACETAMINOPHEN\HYDROCODONE
  6. LEVOCETIRIZI [Concomitant]
  7. LEVOTHYROXIN [Concomitant]
     Active Substance: LEVOTHYROXINE
  8. VITAMIN D [Concomitant]
     Active Substance: VITAMIN D NOS

REACTIONS (2)
  - Gastrointestinal surgery [None]
  - Intentional dose omission [None]

NARRATIVE: CASE EVENT DATE: 20200207
